FAERS Safety Report 7783365-2 (Version None)
Quarter: 2011Q3

REPORT INFORMATION
  Report Type: 
  Country: None (occurrence: None)
  Receive Date: 20110928
  Receipt Date: 20110926
  Transmission Date: 20111222
  Serious: Yes (Death, Hospitalization)
  Sender: FDA-Public Use
  Company Number: JP-BAYER-200915298BYL

PATIENT
  Age: 75 Year
  Sex: Male

DRUGS (8)
  1. URSO 250 [Concomitant]
     Indication: PROPHYLAXIS
     Dosage: SINCE BEFORE ADMINISTRATION
     Route: 048
  2. CISPLATIN [Concomitant]
     Indication: HEPATIC ARTERY EMBOLISM
     Dosage: 50 MG (DAILY DOSE), , INTRAVENOUS
     Route: 042
     Dates: start: 20090918, end: 20090918
  3. NEXAVAR [Suspect]
     Indication: HEPATIC NEOPLASM MALIGNANT
     Dosage: 800 MG (DAILY DOSE),  ORAL
     Route: 048
     Dates: start: 20091016, end: 20091020
  4. SEDAGASTON [Concomitant]
     Indication: GASTRIC DISORDER
     Dosage: SINCE BEFORE ADMINISTRATION
     Route: 048
  5. NEUER [Concomitant]
     Indication: GASTRIC DISORDER
     Dosage: SINCE BEFORE ADMINISTRATION
     Route: 048
  6. NEXAVAR [Suspect]
     Dosage: 800 MG (DAILY DOSE),  ORAL
     Route: 048
     Dates: start: 20091029, end: 20091214
  7. SEVEN E.P [Concomitant]
     Indication: GASTRIC DISORDER
     Dosage: SINCE BEFORE ADMINISTRATION
     Route: 048
  8. LANSOPRAZOLE [Concomitant]
     Indication: GASTRIC DISORDER
     Dosage: SINCE BEFORE ADMINISTRATION
     Route: 048

REACTIONS (5)
  - HEPATIC NEOPLASM MALIGNANT [None]
  - NEOPLASM MALIGNANT [None]
  - PLEURAL EFFUSION [None]
  - ASCITES [None]
  - ALOPECIA [None]
